FAERS Safety Report 9123130 (Version 1)
Quarter: 2013Q1

REPORT INFORMATION
  Report Type: Spontaneous
  Country: GB (occurrence: None)
  Receive Date: 20130128
  Receipt Date: 20130128
  Transmission Date: 20140127
  Serious: Yes (Hospitalization)
  Sender: FDA-Public Use
  Company Number: 2013-01120

PATIENT
  Age: 80 Year
  Sex: Female
  Weight: 70 kg

DRUGS (5)
  1. CETIRIZINE (UNKNOWN) [Suspect]
     Route: 048
     Dates: start: 20120912, end: 20120916
  2. ASPIRIN (ACETYSALICYLIC ACID) [Concomitant]
  3. ADCAL D3 (CALCIUM CARBONATE, COLECALCIFEROL) [Concomitant]
  4. OMEPRAZOLE (OMEPRAZOLE) [Concomitant]
  5. RANITIDINE (RANITIDINE) [Concomitant]

REACTIONS (2)
  - Fall [None]
  - Hyponatraemia [None]
